FAERS Safety Report 14661726 (Version 7)
Quarter: 2018Q3

REPORT INFORMATION
  Report Type: Report from Study
  Country: IT (occurrence: IT)
  Receive Date: 20180320
  Receipt Date: 20180830
  Transmission Date: 20181010
  Serious: Yes (Hospitalization, Other)
  Sender: FDA-Public Use
  Company Number: IT-EXELIXIS-XL18418012537

PATIENT
  Age: 49 Year
  Sex: Male
  Weight: 60 kg

DRUGS (5)
  1. XL184 [Suspect]
     Active Substance: CABOZANTINIB
     Dosage: 75 MG, QD
     Route: 048
     Dates: start: 20180319, end: 20180406
  2. XL184 [Suspect]
     Active Substance: CABOZANTINIB
     Dosage: 75 MG, QD
     Route: 048
     Dates: end: 20180216
  3. XL184 [Suspect]
     Active Substance: CABOZANTINIB
     Dosage: 75 MG, QD
     Route: 048
     Dates: start: 20100415, end: 20111026
  4. XL184 [Suspect]
     Active Substance: CABOZANTINIB
     Indication: MEDULLARY THYROID CANCER
     Dosage: 175 MG, QD
     Route: 048
     Dates: start: 20100304, end: 20100401
  5. XL184 [Suspect]
     Active Substance: CABOZANTINIB
     Dosage: 125 MG, QD
     Route: 048
     Dates: start: 20100402, end: 20100414

REACTIONS (3)
  - Sepsis [Recovered/Resolved]
  - Laryngitis [Recovered/Resolved]
  - Thrombophlebitis [Recovering/Resolving]

NARRATIVE: CASE EVENT DATE: 20180214
